FAERS Safety Report 9741771 (Version 3)
Quarter: 2014Q1

REPORT INFORMATION
  Report Type: Spontaneous
  Country: IT (occurrence: IT)
  Receive Date: 20131210
  Receipt Date: 20140225
  Transmission Date: 20141002
  Serious: Yes (Other)
  Sender: FDA-Public Use
  Company Number: IT-ROCHE-1316765

PATIENT
  Age: 56 Year
  Sex: Female

DRUGS (9)
  1. MABTHERA [Suspect]
     Indication: IMMUNOBLASTIC LYMPHOMA
     Route: 042
     Dates: start: 20130820, end: 20131204
  2. ADRIBLASTINA [Suspect]
     Indication: IMMUNOBLASTIC LYMPHOMA
     Route: 042
     Dates: start: 20130820, end: 20131204
  3. VINCRISTINA [Suspect]
     Indication: IMMUNOBLASTIC LYMPHOMA
     Route: 042
     Dates: start: 20130820, end: 20131204
  4. TACHIPIRINA [Concomitant]
     Indication: PREMEDICATION
     Route: 048
     Dates: start: 20130820, end: 20131204
  5. TRIMETON (ITALY) [Concomitant]
     Indication: PREMEDICATION
     Route: 042
     Dates: start: 20130820, end: 20131204
  6. URBASON SOLUBILE [Concomitant]
     Indication: PREMEDICATION
     Route: 042
     Dates: start: 20130820, end: 20131204
  7. KYTRIL [Concomitant]
     Indication: PROPHYLAXIS OF NAUSEA AND VOMITING
     Route: 042
     Dates: start: 20130820, end: 20131204
  8. ZANTAC [Concomitant]
     Indication: PROPHYLAXIS
     Route: 042
     Dates: start: 20130820, end: 20131204
  9. ENDOXAN BAXTER [Concomitant]
     Indication: CHEMOTHERAPY
     Route: 042
     Dates: start: 20130820, end: 20131204

REACTIONS (1)
  - Venous thrombosis [Recovering/Resolving]
